FAERS Safety Report 7732853-3 (Version None)
Quarter: 2011Q3

REPORT INFORMATION
  Report Type: 
  Country: None (occurrence: None)
  Receive Date: 20110902
  Receipt Date: 20110902
  Transmission Date: 20111222
  Serious: Yes (Hospitalization)
  Sender: FDA-Public Use
  Company Number: None

PATIENT
  Age: 40 Year
  Sex: Female
  Weight: 66.8 kg

DRUGS (2)
  1. DIVALPROEX SODIUM [Suspect]
     Indication: BIPOLAR DISORDER
     Dosage: 1 TAB 1X ORAL
     Route: 048
     Dates: start: 20110819
  2. DIVALPROEX SODIUM [Suspect]
     Indication: BIPOLAR DISORDER
     Dosage: 2 TAB 1X ORAL
     Route: 048
     Dates: start: 20110819

REACTIONS (2)
  - BLOOD SODIUM INCREASED [None]
  - FEELING ABNORMAL [None]
